FAERS Safety Report 16353427 (Version 1)
Quarter: 2019Q2

REPORT INFORMATION
  Report Type: Spontaneous
  Country: CH (occurrence: CH)
  Receive Date: 20190524
  Receipt Date: 20190524
  Transmission Date: 20190711
  Serious: Yes (Hospitalization)
  Sender: FDA-Public Use
  Company Number: CH-ROCHE-2319008

PATIENT
  Age: 57 Year
  Sex: Male

DRUGS (5)
  1. OCREVUS [Suspect]
     Active Substance: OCRELIZUMAB
     Indication: PRIMARY PROGRESSIVE MULTIPLE SCLEROSIS
     Dosage: 1ST PART, 1ST CYCLE?SINGLE DOSE
     Route: 042
     Dates: start: 20181101
  2. OCREVUS [Suspect]
     Active Substance: OCRELIZUMAB
     Dosage: SINGLE DOSE?SECOND PART OF THE 1ST CYCLE
     Route: 042
     Dates: start: 20181115
  3. JANUMET [Concomitant]
     Active Substance: METFORMIN HYDROCHLORIDE\SITAGLIPTIN PHOSPHATE
     Indication: DIABETES MELLITUS
     Dosage: 850MG/50MG, 1-0-1
     Route: 048
  4. CALCIMAGON [CALCIUM] [Concomitant]
     Route: 048
  5. SYMBICORT [Concomitant]
     Active Substance: BUDESONIDE\FORMOTEROL FUMARATE DIHYDRATE
     Indication: ASTHMA
     Dosage: 200/6 TURBOHALER
     Route: 065

REACTIONS (1)
  - Supraventricular tachycardia [Recovered/Resolved]

NARRATIVE: CASE EVENT DATE: 20181115
